FAERS Safety Report 17893475 (Version 4)
Quarter: 2020Q2

REPORT INFORMATION
  Report Type: Spontaneous
  Country: IT (occurrence: IT)
  Receive Date: 20200615
  Receipt Date: 20200630
  Transmission Date: 20200714
  Serious: Yes (Hospitalization, Other)
  Sender: FDA-Public Use
  Company Number: IT-AUROBINDO-AUR-APL-2020-027834

PATIENT
  Age: 64 Year
  Sex: Male
  Weight: 78 kg

DRUGS (11)
  1. OXALIPLATIN SOLUTION FOR INFUSION [Suspect]
     Active Substance: OXALIPLATIN
     Indication: COLORECTAL CANCER STAGE III
     Dosage: 2, CYCLICAL
     Route: 065
     Dates: start: 20160104
  2. CAPECITABINE. [Suspect]
     Active Substance: CAPECITABINE
     Indication: COLON CANCER
     Dosage: XELOX ADJUVANT CHEMOTHERAPY UNK
     Route: 048
  3. DEXAMETHASONE. [Concomitant]
     Active Substance: DEXAMETHASONE
     Indication: COLON CANCER
     Dosage: 8 MILLIGRAM
     Route: 042
     Dates: start: 20160215
  4. OXALIPLATIN SOLUTION FOR INFUSION [Suspect]
     Active Substance: OXALIPLATIN
     Indication: COLON CANCER
     Dosage: 250 MILLIGRAM, CYCLICAL
     Route: 065
     Dates: start: 20160215
  5. ONDANSETRON [Concomitant]
     Active Substance: ONDANSETRON
     Indication: COLON CANCER
     Dosage: 8 MILLIGRAM
     Route: 042
     Dates: start: 20160215
  6. CAPECITABINE. [Suspect]
     Active Substance: CAPECITABINE
     Indication: COLORECTAL CANCER STAGE III
     Dosage: UNK 3, CYCLICAL
     Route: 065
     Dates: start: 20160104
  7. GLUCOSE [Suspect]
     Active Substance: DEXTROSE
     Indication: COLORECTAL CANCER STAGE III
     Dosage: 500 MILLILITER,2 CYCLE WITH PREVIOUS CYCLES OF XELOX
     Route: 065
     Dates: start: 20160104
  8. GLUCOSE [Suspect]
     Active Substance: DEXTROSE
     Dosage: 100 MILLILITER, WASH
     Route: 065
     Dates: start: 20160215
  9. GLUCOSE [Suspect]
     Active Substance: DEXTROSE
     Dosage: 100 MILLILITER, WITH DRUGS INFUSED
     Route: 065
     Dates: start: 20160215
  10. OXALIPLATIN SOLUTION FOR INFUSION [Suspect]
     Active Substance: OXALIPLATIN
     Dosage: XELOX ADJUVANT CHEMOTHERAPY
     Route: 065
  11. GLUCOSE [Suspect]
     Active Substance: DEXTROSE
     Dosage: 500 MILLILITER, 1 CYCLE 9WITH OXALIPLATIN 250 MG)
     Route: 065
     Dates: start: 20160215

REACTIONS (6)
  - Neurotoxicity [Recovered/Resolved]
  - Hypokalaemia [Recovered/Resolved]
  - Blood calcium decreased [Recovered/Resolved]
  - Peripheral motor neuropathy [Recovered/Resolved]
  - Peripheral sensory neuropathy [Unknown]
  - Diarrhoea [Recovered/Resolved]

NARRATIVE: CASE EVENT DATE: 201601
